FAERS Safety Report 5201968-6 (Version None)
Quarter: 2007Q1

REPORT INFORMATION
  Report Type: 
  Country: None (occurrence: None)
  Receive Date: 20070104
  Receipt Date: 20070104
  Transmission Date: 20070707
  Serious: Yes (Hospitalization)
  Sender: FDA-Public Use
  Company Number: None

PATIENT
  Age: 74 Year
  Sex: Male
  Weight: 79.3795 kg

DRUGS (2)
  1. ACETAMINOPHEN AND CODEINE PHOSPHATE #3 [Suspect]
     Indication: ARTHRALGIA
     Dosage: 1 TABLET  FOUR TIMES DAILY PO
     Route: 048
     Dates: start: 20030910, end: 20061006
  2. ACETAMINOPHEN AND CODEINE PHOSPHATE #3 [Suspect]
     Indication: SCIATICA
     Dosage: 1 TABLET  FOUR TIMES DAILY PO
     Route: 048
     Dates: start: 20030910, end: 20061006

REACTIONS (4)
  - CONFUSIONAL STATE [None]
  - DELIRIUM [None]
  - HALLUCINATION, AUDITORY [None]
  - HALLUCINATION, VISUAL [None]
